FAERS Safety Report 8780747 (Version 2)
Quarter: 2013Q3

REPORT INFORMATION
  Report Type: Spontaneous
  Country: GB (occurrence: GB)
  Receive Date: 20120913
  Receipt Date: 20130801
  Transmission Date: 20140515
  Serious: Yes (Hospitalization)
  Sender: FDA-Public Use
  Company Number: GB-ROCHE-1123852

PATIENT
  Age: 46 Year
  Sex: Female

DRUGS (3)
  1. HERCEPTIN [Suspect]
     Indication: BREAST CANCER
     Route: 065
     Dates: start: 20110921, end: 20120613
  2. HERCEPTIN [Suspect]
     Route: 065
     Dates: start: 20120815
  3. PERINDOPRIL [Concomitant]
     Indication: HYPERTENSION
     Dosage: FREQUENCY- DAILY
     Route: 065

REACTIONS (2)
  - Arteriospasm coronary [Recovered/Resolved]
  - Bundle branch block left [Recovered/Resolved]
